FAERS Safety Report 10450552 (Version 2)
Quarter: 2014Q3

REPORT INFORMATION
  Report Type: Spontaneous
  Country: CN (occurrence: CN)
  Receive Date: 20140912
  Receipt Date: 20140919
  Transmission Date: 20150326
  Serious: Yes (Other)
  Sender: FDA-Public Use
  Company Number: PHHY2014CN116312

PATIENT
  Age: 31 Year
  Sex: Female

DRUGS (2)
  1. ALCOHOL. [Suspect]
     Active Substance: ALCOHOL
  2. CYPROTERONE+ETHINYLESTRADIOL [Suspect]
     Active Substance: CYPROTERONE\ETHINYL ESTRADIOL
     Indication: CONTRACEPTION
     Route: 048

REACTIONS (8)
  - Hyperhidrosis [Unknown]
  - Flushing [Unknown]
  - Palpitations [Unknown]
  - Abdominal pain [Unknown]
  - Alcohol intolerance [Unknown]
  - Diarrhoea [Unknown]
  - Nausea [Unknown]
  - Vomiting [Unknown]
